FAERS Safety Report 23604450 (Version 2)
Quarter: 2024Q1

REPORT INFORMATION
  Report Type: Other
  Country: US (occurrence: None)
  Receive Date: 20240307
  Receipt Date: 20240322
  Transmission Date: 20240409
  Serious: Yes (Other)
  Sender: FDA-Public Use
  Company Number: US-ROCHE-3519959

PATIENT
  Age: 52 Year
  Sex: Female

DRUGS (2)
  1. RITUXAN [Suspect]
     Active Substance: RITUXIMAB
     Indication: Chronic lymphocytic leukaemia
     Route: 065
  2. VENCLEXTA [Suspect]
     Active Substance: VENETOCLAX
     Indication: Chronic lymphocytic leukaemia
     Route: 065

REACTIONS (8)
  - Herpes zoster [Unknown]
  - Urinary tract infection [Unknown]
  - Anxiety [Unknown]
  - Asthenia [Unknown]
  - Swelling [Unknown]
  - Ill-defined disorder [Unknown]
  - Splenomegaly [Unknown]
  - Anger [Recovered/Resolved]

NARRATIVE: CASE EVENT DATE: 20190801
